FAERS Safety Report 10889878 (Version 1)
Quarter: 2015Q1

REPORT INFORMATION
  Report Type: Spontaneous
  Country: US (occurrence: US)
  Receive Date: 20150305
  Receipt Date: 20150305
  Transmission Date: 20150721
  Serious: Yes (Other)
  Sender: FDA-Public Use
  Company Number: US-GLAXOSMITHKLINE-US2015017071

PATIENT
  Sex: Female

DRUGS (3)
  1. BECONASE AQ [Suspect]
     Active Substance: BECLOMETHASONE DIPROPIONATE MONOHYDRATE
     Indication: RHINITIS ALLERGIC
     Dosage: UNK
     Route: 045
  2. BECONASE AQ [Suspect]
     Active Substance: BECLOMETHASONE DIPROPIONATE MONOHYDRATE
     Indication: RHINITIS ALLERGIC
     Dosage: UNK, BID
     Route: 045
     Dates: start: 1994, end: 201402
  3. SYNTHROID [Concomitant]
     Active Substance: LEVOTHYROXINE SODIUM

REACTIONS (3)
  - Cataract operation [Recovered/Resolved]
  - Angle closure glaucoma [Recovered/Resolved]
  - Cataract [Recovered/Resolved]
